FAERS Safety Report 8395897 (Version 2)
Quarter: 2012Q4

REPORT INFORMATION
  Report Type: 
  Country: US (occurrence: US)
  Receive Date: 20120208
  Receipt Date: 20121120
  Transmission Date: 20130627
  Serious: Yes (Hospitalization)
  Sender: FDA-Public Use
  Company Number: US-BAYER-2012-012217

PATIENT
  Age: 39 Year
  Sex: Female
  Weight: 68.03 kg

DRUGS (9)
  1. YAZ [Suspect]
     Dosage: UNK
     Dates: start: 200901, end: 200902
  2. OCELLA [Suspect]
     Dosage: UNK
     Dates: start: 200903, end: 200912
  3. YASMIN [Suspect]
     Dosage: UNK
     Dates: start: 200902, end: 200903
  4. FENTANYL [Concomitant]
     Indication: INTERVERTEBRAL DISC BULGING
     Dosage: UNK
     Dates: start: 2000
  5. FENTANYL [Concomitant]
     Indication: PAIN MANAGEMENT
  6. NORCO [Concomitant]
     Indication: INTERVERTEBRAL DISC BULGING
     Dosage: UNK
     Dates: start: 2000
  7. KEFLEX [Concomitant]
  8. ALBUTEROL [Concomitant]
     Indication: ASTHMA
  9. KEPPRA [Concomitant]

REACTIONS (9)
  - Deep vein thrombosis [None]
  - Pulmonary embolism [None]
  - Pain [None]
  - Injury [None]
  - Anxiety [None]
  - Anhedonia [None]
  - Psychological trauma [None]
  - Fear [None]
  - Pain in extremity [None]
